FAERS Safety Report 6599500-8 (Version None)
Quarter: 2010Q1

REPORT INFORMATION
  Report Type: 
  Country: None (occurrence: None)
  Receive Date: 20100216
  Receipt Date: 20100202
  Transmission Date: 20100710
  Serious: Yes (Other)
  Sender: FDA-Public Use
  Company Number: B0632595A

PATIENT
  Age: 23 Year
  Sex: Female

DRUGS (2)
  1. BUPROPION HYDROCHLORIDE [Suspect]
     Dosage: 8 TABLET / INTRANASAL
  2. COCAINE (FORMULATION UNKNOWN) (COCAINE) [Suspect]
     Indication: DRUG ABUSE

REACTIONS (8)
  - AFFECT LABILITY [None]
  - DRUG ABUSE [None]
  - INCORRECT ROUTE OF DRUG ADMINISTRATION [None]
  - PANIC ATTACK [None]
  - RHINALGIA [None]
  - TACHYCARDIA [None]
  - UNEVALUABLE EVENT [None]
  - WRONG TECHNIQUE IN DRUG USAGE PROCESS [None]
